FAERS Safety Report 9967122 (Version 1)
Quarter: 2014Q1

REPORT INFORMATION
  Report Type: Spontaneous
  Country: US (occurrence: US)
  Receive Date: 20140305
  Receipt Date: 20140305
  Transmission Date: 20141002
  Serious: No
  Sender: FDA-Public Use
  Company Number: US-ABBVIE-13P-163-1138330-00

PATIENT
  Age: 33 Year
  Sex: Female
  Weight: 56.75 kg

DRUGS (3)
  1. HUMIRA [Suspect]
     Indication: RHEUMATOID ARTHRITIS
  2. HUMIRA [Suspect]
     Dates: start: 201302, end: 201306
  3. HUMIRA [Suspect]
     Dates: start: 20130725

REACTIONS (3)
  - Fatigue [Recovered/Resolved]
  - Poor quality drug administered [Not Recovered/Not Resolved]
  - Joint swelling [Recovered/Resolved]
